FAERS Safety Report 8072841-3 (Version None)
Quarter: 2012Q1

REPORT INFORMATION
  Report Type: 
  Country: None (occurrence: None)
  Receive Date: 20120126
  Receipt Date: 20120120
  Transmission Date: 20120608
  Serious: Yes (Other)
  Sender: FDA-Public Use
  Company Number: US-SANOFI-AVENTIS-2012SA004649

PATIENT
  Age: 78 Year
  Sex: Male
  Weight: 70 kg

DRUGS (3)
  1. ASPIRIN [Concomitant]
  2. NITROGLYCERIN [Concomitant]
     Indication: ANGINA PECTORIS
  3. PLAVIX [Suspect]
     Route: 048
     Dates: start: 20040101

REACTIONS (6)
  - CARDIOVASCULAR DISORDER [None]
  - VASCULAR OCCLUSION [None]
  - EPISTAXIS [None]
  - SWELLING [None]
  - ANGINA PECTORIS [None]
  - PERIPHERAL ARTERIAL OCCLUSIVE DISEASE [None]
